FAERS Safety Report 23997670 (Version 9)
Quarter: 2025Q4

REPORT INFORMATION
  Report Type: Report from Study
  Country: US (occurrence: US)
  Receive Date: 20240621
  Receipt Date: 20251120
  Transmission Date: 20260118
  Serious: Yes (Hospitalization, Other)
  Sender: BOEHRINGER INGELHEIM
  Company Number: US-BoehringerIngelheim-2023-BI-259748

PATIENT
  Age: 83 Year
  Sex: Male

DRUGS (2)
  1. OFEV [Suspect]
     Active Substance: NINTEDANIB
     Indication: Idiopathic pulmonary fibrosis
     Dates: start: 20230823, end: 202402
  2. OFEV [Suspect]
     Active Substance: NINTEDANIB
     Dates: start: 202408, end: 202501

REACTIONS (40)
  - Spinal operation [Unknown]
  - Coronary artery occlusion [Not Recovered/Not Resolved]
  - Fatigue [Not Recovered/Not Resolved]
  - Endodontic procedure [Recovered/Resolved]
  - Headache [Recovered/Resolved]
  - Headache [Recovered/Resolved]
  - Hypotension [Not Recovered/Not Resolved]
  - Headache [Recovered/Resolved]
  - Artificial crown procedure [Recovered/Resolved]
  - Faeces soft [Recovered/Resolved]
  - Diarrhoea [Recovered/Resolved]
  - Post procedural diarrhoea [Recovered/Resolved]
  - Diarrhoea [Recovered/Resolved]
  - Abdominal discomfort [Not Recovered/Not Resolved]
  - Knee arthroplasty [Not Recovered/Not Resolved]
  - Diarrhoea [Recovering/Resolving]
  - Gastrointestinal disorder [Not Recovered/Not Resolved]
  - Feeling abnormal [Not Recovered/Not Resolved]
  - Diarrhoea [Recovered/Resolved]
  - Spinal operation [Recovered/Resolved]
  - Gastrointestinal disorder [Not Recovered/Not Resolved]
  - Feeling abnormal [Not Recovered/Not Resolved]
  - Abdominal discomfort [Recovered/Resolved]
  - Feeling abnormal [Recovered/Resolved]
  - Abdominal pain upper [Recovered/Resolved]
  - Nausea [Recovered/Resolved]
  - Asthenia [Recovered/Resolved]
  - Pain [Recovered/Resolved]
  - Fall [Unknown]
  - Skin laceration [Recovered/Resolved]
  - Dizziness [Unknown]
  - Endodontic procedure [Recovered/Resolved]
  - Headache [Recovered/Resolved with Sequelae]
  - Asthenia [Unknown]
  - Arthritis [Not Recovered/Not Resolved]
  - Constipation [Recovered/Resolved]
  - Haemorrhage [Unknown]
  - Defaecation urgency [Unknown]
  - Inflammation [Unknown]
  - Procedural pain [Unknown]

NARRATIVE: CASE EVENT DATE: 20230823
